FAERS Safety Report 17195514 (Version 1)
Quarter: 2019Q4

REPORT INFORMATION
  Report Type: Spontaneous
  Country: GB (occurrence: GB)
  Receive Date: 20191224
  Receipt Date: 20191224
  Transmission Date: 20200122
  Serious: Yes (Other)
  Sender: FDA-Public Use
  Company Number: GB-ELI_LILLY_AND_COMPANY-GB201912008459

PATIENT
  Age: 72 Year
  Sex: Male

DRUGS (2)
  1. HUMULIN M3 (MIXTURE 30/70) [Suspect]
     Active Substance: INSULIN HUMAN
     Dosage: 10 U, BID (MORNING AND AFTERNOON)
     Route: 065
  2. HUMULIN M3 (MIXTURE 30/70) [Suspect]
     Active Substance: INSULIN HUMAN
     Indication: PRODUCT USED FOR UNKNOWN INDICATION
     Dosage: UNK UNK, UNKNOWN
     Route: 065

REACTIONS (10)
  - Sepsis [Unknown]
  - Oral pain [Not Recovered/Not Resolved]
  - Hypoaesthesia [Unknown]
  - Oral herpes [Unknown]
  - Rash [Not Recovered/Not Resolved]
  - Toothache [Not Recovered/Not Resolved]
  - Lip blister [Unknown]
  - Pollakiuria [Not Recovered/Not Resolved]
  - Fatigue [Unknown]
  - Speech disorder [Unknown]
